FAERS Safety Report 6633581-8 (Version None)
Quarter: 2010Q1

REPORT INFORMATION
  Report Type: 
  Country: None (occurrence: None)
  Receive Date: 20100312
  Receipt Date: 20100305
  Transmission Date: 20100710
  Serious: Yes (Other)
  Sender: FDA-Public Use
  Company Number: JP-ABBOTT-10P-087-0624687-00

PATIENT
  Age: 80 Year
  Sex: Female

DRUGS (6)
  1. CEFDINIR [Suspect]
     Indication: DRUG USE FOR UNKNOWN INDICATION
     Route: 048
  2. MICARDIS [Suspect]
     Indication: DRUG USE FOR UNKNOWN INDICATION
     Route: 048
  3. HERBESSER [Concomitant]
     Indication: DRUG USE FOR UNKNOWN INDICATION
     Route: 048
  4. CALONAL [Concomitant]
     Indication: DRUG USE FOR UNKNOWN INDICATION
  5. SUCRALFATE [Concomitant]
     Indication: DRUG USE FOR UNKNOWN INDICATION
  6. VOLTAREN [Concomitant]
     Indication: DRUG USE FOR UNKNOWN INDICATION

REACTIONS (2)
  - ACUTE GENERALISED EXANTHEMATOUS PUSTULOSIS [None]
  - LYMPHOCYTE STIMULATION TEST POSITIVE [None]
